FAERS Safety Report 12261325 (Version 2)
Quarter: 2016Q2

REPORT INFORMATION
  Report Type: Spontaneous
  Country: US (occurrence: US)
  Receive Date: 20160412
  Receipt Date: 20160420
  Transmission Date: 20160815
  Serious: Yes (Other)
  Sender: FDA-Public Use
  Company Number: US-GILEAD-2016-0207766

PATIENT
  Age: 45 Year
  Sex: Male

DRUGS (7)
  1. COMPLERA [Suspect]
     Active Substance: EMTRICITABINE\RILPIVIRINE HYDROCHLORIDE\TENOFOVIR DISOPROXIL FUMARATE
     Indication: HIV INFECTION
     Dosage: 1 DF, QD
     Route: 048
  2. FLUTICASONE PROPIONATE. [Concomitant]
     Active Substance: FLUTICASONE PROPIONATE
  3. ATORVASTATIN CALCIUM. [Concomitant]
     Active Substance: ATORVASTATIN CALCIUM
  4. CLARITIN [Concomitant]
     Active Substance: LORATADINE
  5. TESTIM [Concomitant]
     Active Substance: TESTOSTERONE
  6. CLOBETASOL PROPIONATE E [Concomitant]
  7. DICLOFENAC SODIUM. [Concomitant]
     Active Substance: DICLOFENAC SODIUM

REACTIONS (3)
  - Bone marrow oedema syndrome [Unknown]
  - Weight bearing difficulty [Unknown]
  - Arthralgia [Unknown]
